FAERS Safety Report 5684106-5 (Version None)
Quarter: 2008Q1

REPORT INFORMATION
  Report Type: 
  Country: None (occurrence: None)
  Receive Date: 20080328
  Receipt Date: 20070817
  Transmission Date: 20080703
  Serious: No
  Sender: FDA-Public Use
  Company Number: US-AMGEN-US229813

PATIENT
  Age: 66 Year
  Sex: Female

DRUGS (2)
  1. NEULASTA [Suspect]
     Indication: CHEMOTHERAPY
     Route: 065
     Dates: start: 20070502
  2. GEMZAR [Concomitant]
     Route: 065
     Dates: start: 20070501

REACTIONS (6)
  - ACTIVITIES OF DAILY LIVING IMPAIRED [None]
  - ASTHENIA [None]
  - DYSPNOEA [None]
  - HYPERSOMNIA [None]
  - MUSCULAR WEAKNESS [None]
  - MYALGIA [None]
